FAERS Safety Report 10613823 (Version 2)
Quarter: 2015Q3

REPORT INFORMATION
  Report Type: Spontaneous
  Country: US (occurrence: US)
  Receive Date: 20141128
  Receipt Date: 20150909
  Transmission Date: 20151125
  Serious: Yes (Hospitalization, Other)
  Sender: FDA-Public Use
  Company Number: US-SA-2014SA160621

PATIENT
  Age: 54 Year
  Sex: Female

DRUGS (5)
  1. LANTUS SOLOSTAR [Suspect]
     Active Substance: INSULIN GLARGINE
     Indication: TYPE 2 DIABETES MELLITUS
     Route: 065
     Dates: start: 201302
  2. LANTUS [Suspect]
     Active Substance: INSULIN GLARGINE
     Indication: TYPE 2 DIABETES MELLITUS
     Route: 065
  3. SEROQUEL [Concomitant]
     Active Substance: QUETIAPINE FUMARATE
  4. SOLOSTAR [Concomitant]
     Active Substance: DEVICE
  5. VICTOZA [Concomitant]
     Active Substance: LIRAGLUTIDE

REACTIONS (10)
  - Arthritis infective [Unknown]
  - Scar [Unknown]
  - Unevaluable event [Unknown]
  - Neoplasm [Unknown]
  - Malaise [Unknown]
  - Rash [Unknown]
  - Kidney infection [Unknown]
  - Activities of daily living impaired [Unknown]
  - Osteomyelitis [Unknown]
  - Disease progression [Unknown]

NARRATIVE: CASE EVENT DATE: 201302
